FAERS Safety Report 6866855-6 (Version None)
Quarter: 2010Q3

REPORT INFORMATION
  Report Type: 
  Country: None (occurrence: None)
  Receive Date: 20100722
  Receipt Date: 20100715
  Transmission Date: 20110219
  Serious: Yes (Other)
  Sender: FDA-Public Use
  Company Number: US-ASTRAZENECA-2010SE33093

PATIENT
  Age: 913 Month
  Sex: Female
  Weight: 65.8 kg

DRUGS (3)
  1. CRESTOR [Suspect]
     Indication: BLOOD CHOLESTEROL INCREASED
     Route: 048
     Dates: start: 20070101, end: 20100601
  2. THYROID MEDICATION [Concomitant]
  3. VITAMINS [Concomitant]

REACTIONS (6)
  - ARTERIAL THROMBOSIS [None]
  - CHEST PAIN [None]
  - HYPOTENSION [None]
  - LOSS OF CONSCIOUSNESS [None]
  - MUSCLE SPASMS [None]
  - PAIN IN JAW [None]
